FAERS Safety Report 11109758 (Version 1)
Quarter: 2015Q2

REPORT INFORMATION
  Report Type: Spontaneous
  Country: US (occurrence: US)
  Receive Date: 20150513
  Receipt Date: 20150513
  Transmission Date: 20150821
  Serious: Yes (Hospitalization)
  Sender: FDA-Public Use
  Company Number: US-MYLANLABS-2015M1015655

PATIENT

DRUGS (1)
  1. LIDOCAINE. [Suspect]
     Active Substance: LIDOCAINE
     Dosage: 250MG IN 250ML NORMAL SALINE INFUSED FOR OVER 2HOURS
     Route: 050

REACTIONS (2)
  - Complex regional pain syndrome [Recovering/Resolving]
  - Condition aggravated [Recovering/Resolving]
